FAERS Safety Report 5317992-9 (Version None)
Quarter: 2007Q1

REPORT INFORMATION
  Report Type: 
  Country: None (occurrence: None)
  Receive Date: 20070202
  Receipt Date: 20060301
  Transmission Date: 20070707
  Serious: Yes (Other)
  Sender: FDA-Public Use
  Company Number: HQWYE160106MAR06

PATIENT
  Age: 46 Year
  Sex: Female
  Weight: 74 kg

DRUGS (1)
  1. NORPLANT SYSTEM [Suspect]
     Dosage: SUBCUTANEOUS
     Route: 058
     Dates: start: 19930101, end: 20060322

REACTIONS (1)
  - COMPLICATION OF DEVICE REMOVAL [None]
